FAERS Safety Report 6879628-5 (Version None)
Quarter: 2010Q3

REPORT INFORMATION
  Report Type: 
  Country: None (occurrence: None)
  Receive Date: 20100727
  Receipt Date: 20100719
  Transmission Date: 20110219
  Serious: Yes (Hospitalization)
  Sender: FDA-Public Use
  Company Number: US-ABBOTT-10P-163-0658738-00

PATIENT
  Sex: Female

DRUGS (1)
  1. LUPRON DEPOT-PED [Suspect]
     Indication: PRECOCIOUS PUBERTY
     Dates: start: 20100601, end: 20100709

REACTIONS (4)
  - ABDOMINAL PAIN [None]
  - ABSCESS [None]
  - DIARRHOEA [None]
  - MYOSITIS [None]
